FAERS Safety Report 7047549-3 (Version None)
Quarter: 2010Q4

REPORT INFORMATION
  Report Type: 
  Country: None (occurrence: None)
  Receive Date: 20101015
  Receipt Date: 20101008
  Transmission Date: 20110411
  Serious: Yes (Other)
  Sender: FDA-Public Use
  Company Number: GB-PFIZER INC-2010128763

PATIENT
  Age: 64 Year
  Sex: Male
  Weight: 107 kg

DRUGS (4)
  1. CELECOXIB [Suspect]
     Indication: PAIN
     Dosage: 400 MG DAILY
     Dates: start: 20100201
  2. VORICONAZOLE [Interacting]
     Indication: BRONCHOPULMONARY ASPERGILLOSIS ALLERGIC
     Dosage: 200 MG, 2X/DAY
     Route: 048
     Dates: start: 20100201, end: 20100507
  3. TRAMADOL [Interacting]
     Indication: PAIN
  4. KETOPROFEN [Suspect]
     Dosage: UNK
     Dates: end: 20100201

REACTIONS (4)
  - CONSTIPATION [None]
  - DIARRHOEA [None]
  - DRUG INTERACTION [None]
  - FEELING ABNORMAL [None]
